FAERS Safety Report 4411758-X (Version None)
Quarter: 2004Q3

REPORT INFORMATION
  Report Type: 
  Country: None (occurrence: None)
  Receive Date: 20040729
  Receipt Date: 20040729
  Transmission Date: 20050211
  Serious: No
  Sender: FDA-Public Use
  Company Number: None

PATIENT
  Sex: Female

DRUGS (1)
  1. OXALIPLATIN [Suspect]
     Indication: CARCINOMA
     Dosage: 155 MG IV
     Route: 042

REACTIONS (3)
  - EAR PRURITUS [None]
  - OEDEMA PERIPHERAL [None]
  - PRURITUS [None]
